FAERS Safety Report 5890985-9 (Version None)
Quarter: 2008Q3

REPORT INFORMATION
  Report Type: 
  Country: None (occurrence: None)
  Receive Date: 20080922
  Receipt Date: 20080912
  Transmission Date: 20090109
  Serious: Yes (Other)
  Sender: FDA-Public Use
  Company Number: B0531568A

PATIENT
  Age: 72 Year
  Sex: Female

DRUGS (12)
  1. ZOVIRAX [Suspect]
     Indication: HERPES ZOSTER
     Dosage: 500MG PER DAY
     Route: 042
     Dates: start: 20080726, end: 20080728
  2. VALTREX [Suspect]
     Indication: HERPES ZOSTER
     Dosage: 1000MG PER DAY
     Route: 048
     Dates: start: 20080726, end: 20080728
  3. ANTIRHEUMATIC MEDICATION [Suspect]
     Route: 065
  4. RHEUMATREX [Concomitant]
     Route: 048
  5. CYANOCOBALAMIN [Concomitant]
     Route: 065
  6. BONALON [Concomitant]
     Route: 048
  7. BUP-4 [Concomitant]
     Route: 048
  8. MUCOSTA [Concomitant]
     Route: 048
  9. MINOCYCLINE HCL [Concomitant]
     Route: 065
  10. HYPEN [Concomitant]
     Route: 048
     Dates: start: 20080723
  11. DEPAS [Concomitant]
     Route: 048
     Dates: start: 20080723
  12. MYONAL [Concomitant]
     Route: 048
     Dates: start: 20080723

REACTIONS (1)
  - RENAL FAILURE [None]
